FAERS Safety Report 17878877 (Version 1)
Quarter: 2020Q2

REPORT INFORMATION
  Report Type: Report from Study
  Country: None (occurrence: US)
  Receive Date: 20200610
  Receipt Date: 20200610
  Transmission Date: 20200714
  Serious: Yes (Hospitalization, Other)
  Sender: FDA-Public Use
  Company Number: US-ABBVIE-20K-163-3249584-00

PATIENT
  Age: 73 Year
  Sex: Female

DRUGS (1)
  1. HUMIRA [Suspect]
     Active Substance: ADALIMUMAB
     Indication: CROHN^S DISEASE
     Route: 058

REACTIONS (15)
  - Intestinal resection [Unknown]
  - Immune thrombocytopenia [Unknown]
  - Wheezing [Unknown]
  - Confusional state [Unknown]
  - Nasopharyngitis [Unknown]
  - Transfusion [Unknown]
  - Malaise [Unknown]
  - Stress [Unknown]
  - Splenectomy [Unknown]
  - Parkinson^s disease [Unknown]
  - Injection site pain [Unknown]
  - Breast cancer female [Unknown]
  - Arthritis [Unknown]
  - Diarrhoea [Unknown]
  - Anxiety [Unknown]

NARRATIVE: CASE EVENT DATE: 20200128
